FAERS Safety Report 20946595 (Version 1)
Quarter: 2022Q2

REPORT INFORMATION
  Report Type: Spontaneous
  Country: US (occurrence: US)
  Receive Date: 20220610
  Receipt Date: 20220610
  Transmission Date: 20220720
  Serious: Yes (Hospitalization)
  Sender: FDA-Public Use
  Company Number: US-HORIZON THERAPEUTICS-HZN-2022-004006

PATIENT

DRUGS (2)
  1. KRYSTEXXA [Suspect]
     Active Substance: PEGLOTICASE
     Indication: Gout
     Dosage: FIRST INFUSION, EVERY 2 WEEKS
     Route: 042
     Dates: start: 20220429
  2. KRYSTEXXA [Suspect]
     Active Substance: PEGLOTICASE
     Dosage: SECOND INFUSION, EVERY 2 WEEKS
     Route: 042
     Dates: start: 202205, end: 20220529

REACTIONS (2)
  - Localised infection [Not Recovered/Not Resolved]
  - Arthralgia [Not Recovered/Not Resolved]

NARRATIVE: CASE EVENT DATE: 20220529
